FAERS Safety Report 8431286-4 (Version None)
Quarter: 2012Q2

REPORT INFORMATION
  Report Type: 
  Country: None (occurrence: None)
  Receive Date: 20120613
  Receipt Date: 20120605
  Transmission Date: 20120825
  Serious: Yes (Hospitalization)
  Sender: FDA-Public Use
  Company Number: US-BIOGENIDEC-2012BI017124

PATIENT
  Age: 39 Year
  Sex: Female
  Weight: 46 kg

DRUGS (19)
  1. OXYCODONE HCL [Concomitant]
     Route: 048
  2. VITAMIN D [Concomitant]
     Route: 048
  3. DULERA [Concomitant]
     Route: 055
  4. NYSTOP [Concomitant]
     Route: 061
  5. PROTONIX [Concomitant]
     Route: 048
  6. CELEXA [Concomitant]
     Route: 048
  7. ATIVAN [Concomitant]
     Route: 048
  8. SINGULAIR [Concomitant]
     Route: 048
  9. PRILOSEC OTC [Concomitant]
     Route: 048
  10. DALTEPARIN SODIUM [Concomitant]
     Route: 058
  11. DURAGESIC-100 [Concomitant]
     Route: 062
  12. PHENERGAN [Concomitant]
     Route: 048
  13. DESYREL [Concomitant]
     Indication: INSOMNIA
     Route: 048
  14. OXYCONTIN [Concomitant]
     Route: 048
  15. DESYREL [Concomitant]
     Route: 048
  16. PROVENTIL [Concomitant]
     Route: 055
  17. TYSABRI [Suspect]
     Indication: CROHN'S DISEASE
     Route: 042
     Dates: start: 20110810
  18. VIOKASE 16 [Concomitant]
     Route: 048
  19. TPN [Concomitant]
     Route: 042

REACTIONS (2)
  - PYREXIA [None]
  - HEPATITIS [None]
